FAERS Safety Report 4548102-3 (Version None)
Quarter: 2005Q1

REPORT INFORMATION
  Report Type: 
  Country: None (occurrence: None)
  Receive Date: 20050105
  Receipt Date: 20050105
  Transmission Date: 20050727
  Serious: Yes (Life-Threatening, Hospitalization)
  Sender: FDA-Public Use
  Company Number: None

PATIENT
  Age: 74 Year
  Sex: Male
  Weight: 89.6 kg

DRUGS (5)
  1. LISINOPRIL [Suspect]
     Indication: HYPERTENSION
     Dosage: 40 MG, 20 MG BID ORAL
     Route: 048
     Dates: start: 20040203, end: 20040722
  2. HCTZ 25/TRIAMTERENE 50 [Concomitant]
  3. FELODIPINE [Concomitant]
  4. LORATADINE [Concomitant]
  5. RABEPRAZOLE NA [Concomitant]

REACTIONS (1)
  - RENAL IMPAIRMENT [None]
